FAERS Safety Report 17846456 (Version 2)
Quarter: 2021Q3

REPORT INFORMATION
  Report Type: Spontaneous
  Country: CA (occurrence: CA)
  Receive Date: 20200601
  Receipt Date: 20210706
  Transmission Date: 20211014
  Serious: Yes (Life-Threatening, Other)
  Sender: FDA-Public Use
  Company Number: CA-TEVA-2020-CA-1242741

PATIENT
  Age: 45 Year
  Sex: Female

DRUGS (65)
  1. MYCOPHENOLATE MOFETIL. [Suspect]
     Active Substance: MYCOPHENOLATE MOFETIL
     Route: 048
  2. ENBREL [Suspect]
     Active Substance: ETANERCEPT
     Dosage: 25 MILLIGRAM DAILY;
     Route: 058
  3. PROGRAF [Suspect]
     Active Substance: TACROLIMUS
     Dosage: 5 MILLIGRAM DAILY;
     Route: 048
  4. PROGRAF [Suspect]
     Active Substance: TACROLIMUS
     Dosage: 2000 MILLIGRAM DAILY;
     Route: 048
  5. PROGRAF [Suspect]
     Active Substance: TACROLIMUS
     Dosage: 2.5 MILLIGRAM DAILY;
     Route: 048
  6. ANTITHYMOCYTE IMMUNOGLOBULIN [Suspect]
     Active Substance: THYMOCYTE IMMUNE GLOBULIN NOS
     Route: 065
  7. TACROLIMUS. [Suspect]
     Active Substance: TACROLIMUS
     Indication: TRANSPLANT
     Route: 048
  8. MYCOPHENOLATE MOFETIL. [Suspect]
     Active Substance: MYCOPHENOLATE MOFETIL
     Dosage: 2000 MILLIGRAM DAILY;
     Route: 048
  9. MYCOPHENOLATE MOFETIL. [Suspect]
     Active Substance: MYCOPHENOLATE MOFETIL
     Dosage: 200 MILLIGRAM DAILY;
     Route: 065
  10. ENBREL [Suspect]
     Active Substance: ETANERCEPT
     Dosage: 50 MILLIGRAM DAILY;
     Route: 058
  11. PROGRAF [Suspect]
     Active Substance: TACROLIMUS
     Dosage: 6 MILLIGRAM DAILY;
     Route: 048
  12. PROGRAF [Suspect]
     Active Substance: TACROLIMUS
     Dosage: 6 MILLIGRAM DAILY;
     Route: 048
  13. PROGRAF [Suspect]
     Active Substance: TACROLIMUS
     Dosage: 6 MILLIGRAM DAILY;
     Route: 048
  14. PROGRAF [Suspect]
     Active Substance: TACROLIMUS
     Dosage: 4 MILLIGRAM DAILY;
     Route: 048
  15. MYCOPHENOLATE MOFETIL. [Suspect]
     Active Substance: MYCOPHENOLATE MOFETIL
     Indication: PRODUCT USED FOR UNKNOWN INDICATION
     Dosage: 2000 MILLIGRAM DAILY;
     Route: 048
  16. MYCOPHENOLATE MOFETIL. [Suspect]
     Active Substance: MYCOPHENOLATE MOFETIL
     Route: 048
  17. DACLIZUMAB [Suspect]
     Active Substance: DACLIZUMAB
     Indication: PRODUCT USED FOR UNKNOWN INDICATION
     Route: 042
  18. DACLIZUMAB [Suspect]
     Active Substance: DACLIZUMAB
     Indication: TRANSPLANT
     Route: 042
  19. DACLIZUMAB [Suspect]
     Active Substance: DACLIZUMAB
     Route: 042
  20. PROGRAF [Suspect]
     Active Substance: TACROLIMUS
     Indication: TRANSPLANT
     Dosage: 4 MILLIGRAM DAILY;
     Route: 048
  21. ANTITHYMOCYTE IMMUNOGLOBULIN [Suspect]
     Active Substance: THYMOCYTE IMMUNE GLOBULIN NOS
     Route: 065
  22. TACROLIMUS. [Suspect]
     Active Substance: TACROLIMUS
     Dosage: 6 MILLIGRAM DAILY;
     Route: 048
  23. TACROLIMUS. [Suspect]
     Active Substance: TACROLIMUS
     Dosage: 5 MILLIGRAM DAILY;
     Route: 048
  24. MYCOPHENOLATE MOFETIL. [Suspect]
     Active Substance: MYCOPHENOLATE MOFETIL
     Indication: TRANSPLANT
     Dosage: 2000 MILLIGRAM DAILY;
     Route: 048
  25. MYCOPHENOLATE MOFETIL. [Suspect]
     Active Substance: MYCOPHENOLATE MOFETIL
     Route: 048
  26. NEORAL [Suspect]
     Active Substance: CYCLOSPORINE
     Indication: PRODUCT USED FOR UNKNOWN INDICATION
  27. RAPAMUNE [Suspect]
     Active Substance: SIROLIMUS
     Indication: PRODUCT USED FOR UNKNOWN INDICATION
  28. SULFASALAZINE. [Suspect]
     Active Substance: SULFASALAZINE
     Indication: RHEUMATOID ARTHRITIS
  29. ANTITHYMOCYTE IMMUNOGLOBULIN [Suspect]
     Active Substance: THYMOCYTE IMMUNE GLOBULIN NOS
     Route: 065
  30. ANTITHYMOCYTE IMMUNOGLOBULIN [Suspect]
     Active Substance: THYMOCYTE IMMUNE GLOBULIN NOS
     Route: 065
  31. MYCOPHENOLATE MOFETIL. [Suspect]
     Active Substance: MYCOPHENOLATE MOFETIL
     Dosage: 2000 MILLIGRAM DAILY;
     Route: 048
  32. ENBREL [Suspect]
     Active Substance: ETANERCEPT
     Indication: PRODUCT USED FOR UNKNOWN INDICATION
     Route: 058
  33. ENBREL [Suspect]
     Active Substance: ETANERCEPT
     Route: 058
  34. ENBREL [Suspect]
     Active Substance: ETANERCEPT
     Route: 058
  35. ENBREL [Suspect]
     Active Substance: ETANERCEPT
     Route: 058
  36. PROGRAF [Suspect]
     Active Substance: TACROLIMUS
     Dosage: 5 MILLIGRAM DAILY;
     Route: 048
  37. PROGRAF [Suspect]
     Active Substance: TACROLIMUS
     Dosage: 6 MILLIGRAM DAILY;
     Route: 048
  38. PROGRAF [Suspect]
     Active Substance: TACROLIMUS
     Dosage: 5 MILLIGRAM DAILY;
     Route: 048
  39. PROGRAF [Suspect]
     Active Substance: TACROLIMUS
     Dosage: 2 MILLIGRAM DAILY;
     Route: 048
  40. PROGRAF [Suspect]
     Active Substance: TACROLIMUS
     Dosage: 6 MILLIGRAM DAILY;
     Route: 048
  41. SULFASALAZINE. [Suspect]
     Active Substance: SULFASALAZINE
     Indication: PRODUCT USED FOR UNKNOWN INDICATION
     Route: 065
  42. PROGRAF [Suspect]
     Active Substance: TACROLIMUS
     Dosage: 6 MILLIGRAM DAILY;
     Route: 048
  43. PROGRAF [Suspect]
     Active Substance: TACROLIMUS
     Dosage: 2.5 MILLIGRAM DAILY;
     Route: 048
  44. PROGRAF [Suspect]
     Active Substance: TACROLIMUS
     Dosage: 4 MILLIGRAM DAILY;
     Route: 048
  45. REMICADE [Suspect]
     Active Substance: INFLIXIMAB
     Indication: PRODUCT USED FOR UNKNOWN INDICATION
     Route: 042
  46. MYCOPHENOLATE MOFETIL. [Suspect]
     Active Substance: MYCOPHENOLATE MOFETIL
     Dosage: 2000 MILLIGRAM DAILY;
     Route: 048
  47. MYCOPHENOLATE MOFETIL. [Suspect]
     Active Substance: MYCOPHENOLATE MOFETIL
     Dosage: 2000 MILLIGRAM DAILY;
     Route: 048
  48. ENBREL [Suspect]
     Active Substance: ETANERCEPT
     Dosage: 25 MILLIGRAM DAILY;
     Route: 048
  49. PROGRAF [Suspect]
     Active Substance: TACROLIMUS
     Indication: PRODUCT USED FOR UNKNOWN INDICATION
     Dosage: 11.1 GRAM DAILY;
     Route: 065
  50. PROGRAF [Suspect]
     Active Substance: TACROLIMUS
     Dosage: 6 MILLIGRAM DAILY;
     Route: 048
  51. PROGRAF [Suspect]
     Active Substance: TACROLIMUS
     Dosage: 5 MILLIGRAM DAILY;
     Route: 048
  52. PROGRAF [Suspect]
     Active Substance: TACROLIMUS
     Dosage: 5 MILLIGRAM DAILY;
     Route: 048
  53. PROGRAF [Suspect]
     Active Substance: TACROLIMUS
     Dosage: 4 MILLIGRAM DAILY;
     Route: 048
  54. TACROLIMUS. [Suspect]
     Active Substance: TACROLIMUS
     Dosage: 4 MILLIGRAM DAILY;
     Route: 048
  55. MYCOPHENOLATE MOFETIL. [Suspect]
     Active Substance: MYCOPHENOLATE MOFETIL
     Dosage: 2000 MILLIGRAM DAILY;
     Route: 048
  56. ENBREL [Suspect]
     Active Substance: ETANERCEPT
     Dosage: 50 MILLIGRAM DAILY;
     Route: 048
  57. ENBREL [Suspect]
     Active Substance: ETANERCEPT
     Route: 048
  58. ENBREL [Suspect]
     Active Substance: ETANERCEPT
     Route: 058
  59. NEORAL [Suspect]
     Active Substance: CYCLOSPORINE
     Indication: TRANSPLANT
     Route: 065
  60. RAPAMUNE [Suspect]
     Active Substance: SIROLIMUS
     Indication: TRANSPLANT
     Route: 065
  61. ANTITHYMOCYTE IMMUNOGLOBULIN [Suspect]
     Active Substance: THYMOCYTE IMMUNE GLOBULIN NOS
     Indication: PRODUCT USED FOR UNKNOWN INDICATION
     Route: 065
  62. ANTITHYMOCYTE IMMUNOGLOBULIN [Suspect]
     Active Substance: THYMOCYTE IMMUNE GLOBULIN NOS
     Indication: TRANSPLANT
     Route: 065
  63. TACROLIMUS. [Suspect]
     Active Substance: TACROLIMUS
     Indication: PRODUCT USED FOR UNKNOWN INDICATION
     Dosage: 6 MILLIGRAM DAILY;
     Route: 048
  64. TACROLIMUS. [Suspect]
     Active Substance: TACROLIMUS
     Dosage: 4 MILLIGRAM DAILY;
     Route: 048
  65. TACROLIMUS. [Suspect]
     Active Substance: TACROLIMUS
     Dosage: 5 MILLIGRAM DAILY;
     Route: 048

REACTIONS (16)
  - Alopecia [Not Recovered/Not Resolved]
  - Condition aggravated [Not Recovered/Not Resolved]
  - Liver function test abnormal [Not Recovered/Not Resolved]
  - Loss of personal independence in daily activities [Not Recovered/Not Resolved]
  - Drug ineffective [Not Recovered/Not Resolved]
  - Product use issue [Not Recovered/Not Resolved]
  - Ovarian cyst [Not Recovered/Not Resolved]
  - Acne [Not Recovered/Not Resolved]
  - Pain [Not Recovered/Not Resolved]
  - Rheumatoid arthritis [Not Recovered/Not Resolved]
  - Pneumonia [Not Recovered/Not Resolved]
  - Transplant dysfunction [Not Recovered/Not Resolved]
  - Transplant rejection [Not Recovered/Not Resolved]
  - Overdose [Not Recovered/Not Resolved]
  - Sleep disorder due to general medical condition, insomnia type [Not Recovered/Not Resolved]
  - Incorrect route of product administration [Not Recovered/Not Resolved]
